FAERS Safety Report 24769824 (Version 1)
Quarter: 2024Q4

REPORT INFORMATION
  Report Type: Spontaneous
  Country: JP (occurrence: JP)
  Receive Date: 20241224
  Receipt Date: 20241224
  Transmission Date: 20250114
  Serious: Yes (Other)
  Sender: CEDIPROF
  Company Number: JP-CEDIPROF, INC.-2024CED00005

PATIENT
  Age: 9 Year
  Sex: Male

DRUGS (2)
  1. METHYLPHENIDATE HYDROCHLORIDE [Suspect]
     Active Substance: METHYLPHENIDATE HYDROCHLORIDE
     Indication: Attention deficit hyperactivity disorder
     Dosage: EXTENDED-RELEASE
  2. RISPERIDONE [Concomitant]
     Active Substance: RISPERIDONE

REACTIONS (1)
  - Dystonia [Recovered/Resolved]
